FAERS Safety Report 16598240 (Version 2)
Quarter: 2019Q3

REPORT INFORMATION
  Report Type: Spontaneous
  Country: ES (occurrence: ES)
  Receive Date: 20190719
  Receipt Date: 20190801
  Transmission Date: 20191004
  Serious: Yes (Other)
  Sender: FDA-Public Use
  Company Number: ES-PFIZER INC-2019308986

PATIENT
  Age: 21 Year
  Sex: Male

DRUGS (16)
  1. METHOTREXATE SODIUM. [Suspect]
     Active Substance: METHOTREXATE SODIUM
     Dosage: 12 MG, UNK (1 COURSE)
     Route: 037
  2. CYTARABINE. [Concomitant]
     Active Substance: CYTARABINE
     Dosage: 30 MG, UNK (1 COURSE)
     Route: 037
  3. METHOTREXATE SODIUM. [Suspect]
     Active Substance: METHOTREXATE SODIUM
     Dosage: UNK, HIGH-DOSE (HD) (3 G/M2 ON DAY 1)
  4. DEXAMETHASONE. [Concomitant]
     Active Substance: DEXAMETHASONE
     Indication: DIFFUSE LARGE B-CELL LYMPHOMA
     Dosage: UNK, 4 COURSES
  5. CYCLOPHOSPHAMIDE. [Concomitant]
     Active Substance: CYCLOPHOSPHAMIDE
     Indication: DIFFUSE LARGE B-CELL LYMPHOMA
     Dosage: UNK, HYPERFRACTIONATED, 4 COURSES)
  6. RITUXIMAB. [Concomitant]
     Active Substance: RITUXIMAB
     Indication: DIFFUSE LARGE B-CELL LYMPHOMA
     Dosage: UNK ( 4 COURSES)
  7. CYTARABINE. [Concomitant]
     Active Substance: CYTARABINE
     Indication: DIFFUSE LARGE B-CELL LYMPHOMA
     Dosage: UNK (3 ALTERNATING COURSES)
  8. HYDROCORTISONE. [Concomitant]
     Active Substance: HYDROCORTISONE
     Indication: DIFFUSE LARGE B-CELL LYMPHOMA
     Dosage: 20 MG, UNK (1 COURSE)
     Route: 037
  9. IFOSFAMIDE. [Concomitant]
     Active Substance: IFOSFAMIDE
     Indication: HAEMATOPOIETIC STEM CELL MOBILISATION
     Dosage: UNK (A COURSE)
  10. METHOTREXATE SODIUM. [Suspect]
     Active Substance: METHOTREXATE SODIUM
     Indication: DIFFUSE LARGE B-CELL LYMPHOMA
     Dosage: UNK, 3 ALTERNATING COURSES
  11. VINCRISTINE [Concomitant]
     Active Substance: VINCRISTINE
     Indication: DIFFUSE LARGE B-CELL LYMPHOMA
     Dosage: UNK, 4 COURSES
  12. DOXORUBICIN [Concomitant]
     Active Substance: DOXORUBICIN
     Indication: DIFFUSE LARGE B-CELL LYMPHOMA
     Dosage: UNK, 4 COURSES
  13. RITUXIMAB. [Concomitant]
     Active Substance: RITUXIMAB
     Indication: HAEMATOPOIETIC STEM CELL MOBILISATION
     Dosage: UNK (3 ALTERNATING COURSES)
  14. RITUXIMAB. [Concomitant]
     Active Substance: RITUXIMAB
     Dosage: UNK (A COURSE)
  15. CARBOPLATIN. [Concomitant]
     Active Substance: CARBOPLATIN
     Indication: HAEMATOPOIETIC STEM CELL MOBILISATION
     Dosage: UNK (A COURSE)
  16. ETOPOSIDE. [Concomitant]
     Active Substance: ETOPOSIDE
     Indication: HAEMATOPOIETIC STEM CELL MOBILISATION
     Dosage: UNK (A COURSE)

REACTIONS (1)
  - Neurotoxicity [Recovered/Resolved]
